FAERS Safety Report 6380711-1 (Version None)
Quarter: 2009Q3

REPORT INFORMATION
  Report Type: 
  Country: None (occurrence: None)
  Receive Date: 20090929
  Receipt Date: 20090918
  Transmission Date: 20100115
  Serious: Yes (Hospitalization)
  Sender: FDA-Public Use
  Company Number: TW-ROCHE-657788

PATIENT
  Sex: Female
  Weight: 64.5 kg

DRUGS (1)
  1. METHOXY POLYETHYLENE GLYCOL-EPOETIN BETA [Suspect]
     Dosage: LAST DOSE PRIOR TO SAE: 16 JULY 2009, PERMANENTLY DISCONTINUED
     Route: 058
     Dates: start: 20090514, end: 20090716

REACTIONS (1)
  - RENAL IMPAIRMENT [None]
